FAERS Safety Report 7358908-3 (Version None)
Quarter: 2011Q1

REPORT INFORMATION
  Report Type: 
  Country: None (occurrence: None)
  Receive Date: 20110317
  Receipt Date: 20110307
  Transmission Date: 20110831
  Serious: Yes (Other)
  Sender: FDA-Public Use
  Company Number: US-WATSON-2011-02875

PATIENT
  Sex: Male
  Weight: 129 kg

DRUGS (3)
  1. FENTANYL-50 [Suspect]
     Indication: BACK PAIN
     Dosage: 1 PATCH APPLIED
     Route: 062
     Dates: start: 20110303, end: 20110303
  2. FENTANYL-50 [Suspect]
     Dosage: 1 PATCH APPLIED
     Route: 062
     Dates: start: 20110302, end: 20110302
  3. CYMBALTA [Concomitant]
     Indication: PRODUCT USED FOR UNKNOWN INDICATION
     Dosage: 60 MG, DAILY
     Route: 048
     Dates: start: 20101101

REACTIONS (9)
  - ACCIDENTAL OVERDOSE [None]
  - CONFUSIONAL STATE [None]
  - LOSS OF CONSCIOUSNESS [None]
  - LOGORRHOEA [None]
  - DRUG PRESCRIBING ERROR [None]
  - THINKING ABNORMAL [None]
  - IRRITABILITY [None]
  - VOMITING [None]
  - FATIGUE [None]
